FAERS Safety Report 6997125-3 (Version None)
Quarter: 2010Q3

REPORT INFORMATION
  Report Type: 
  Country: None (occurrence: None)
  Receive Date: 20100918
  Receipt Date: 20090921
  Transmission Date: 20110219
  Serious: Yes (Hospitalization, Other)
  Sender: FDA-Public Use
  Company Number: US-WYE-H11099109

PATIENT
  Sex: Female
  Weight: 75 kg

DRUGS (4)
  1. EFFEXOR [Suspect]
     Indication: DEPRESSION
     Dosage: UNKNOWN
     Route: 048
  2. ELAVIL [Suspect]
     Indication: PAIN
     Dosage: 30 TABLETS (OVERDOSE AMOUNT)
     Route: 048
     Dates: start: 20080301, end: 20080301
  3. BACLOFEN [Concomitant]
     Indication: MULTIPLE SCLEROSIS
     Dosage: UNKNOWN
  4. REBIF [Suspect]
     Indication: MULTIPLE SCLEROSIS
     Dosage: UNKNOWN
     Dates: start: 20061221, end: 20080301

REACTIONS (5)
  - CONDITION AGGRAVATED [None]
  - DEPRESSION [None]
  - INTENTIONAL OVERDOSE [None]
  - SUICIDAL IDEATION [None]
  - SUICIDE ATTEMPT [None]
